FAERS Safety Report 21420930 (Version 2)
Quarter: 2022Q4

REPORT INFORMATION
  Report Type: Spontaneous
  Country: US (occurrence: US)
  Receive Date: 20221007
  Receipt Date: 20221011
  Transmission Date: 20230112
  Serious: No
  Sender: FDA-Public Use
  Company Number: US-AMGEN-USASP2022170933

PATIENT
  Age: 76 Year
  Sex: Female

DRUGS (2)
  1. REPATHA [Suspect]
     Active Substance: EVOLOCUMAB
     Indication: Blood cholesterol abnormal
     Dosage: 140 MICROGRAM PER MILLILITER, Q2WK
     Route: 065
     Dates: start: 202204
  2. REPATHA [Suspect]
     Active Substance: EVOLOCUMAB
     Dosage: 140 MICROGRAM PER MILLILITER, Q2WK
     Route: 065
     Dates: start: 202204

REACTIONS (2)
  - Product storage error [Unknown]
  - Circumstance or information capable of leading to medication error [Unknown]

NARRATIVE: CASE EVENT DATE: 20220930
